FAERS Safety Report 4623241-7 (Version None)
Quarter: 2005Q1

REPORT INFORMATION
  Report Type: 
  Country: None (occurrence: None)
  Receive Date: 20050329
  Receipt Date: 20050321
  Transmission Date: 20050727
  Serious: Yes (Death, Hospitalization, Other)
  Sender: FDA-Public Use
  Company Number: 163-20785-05020100

PATIENT
  Age: 85 Year
  Sex: Female

DRUGS (2)
  1. THALOMID [Suspect]
     Indication: MULTIPLE MYELOMA
     Dosage: 50MG ALTERNATING WITH 100MG, QHS,  ORAL
     Route: 048
     Dates: start: 20040812, end: 20050101
  2. THALOMID [Suspect]

REACTIONS (5)
  - ABSCESS INTESTINAL [None]
  - DIVERTICULAR PERFORATION [None]
  - DIVERTICULITIS [None]
  - MALIGNANT NEOPLASM PROGRESSION [None]
  - MULTIPLE MYELOMA [None]
